FAERS Safety Report 11082476 (Version 1)
Quarter: 2015Q2

REPORT INFORMATION
  Report Type: Spontaneous
  Country: VE (occurrence: VE)
  Receive Date: 20150501
  Receipt Date: 20150501
  Transmission Date: 20150821
  Serious: Yes (Death, Other)
  Sender: FDA-Public Use
  Company Number: PHHY2015VE041049

PATIENT
  Age: 63 Year
  Sex: Female

DRUGS (4)
  1. AROMASIN [Concomitant]
     Active Substance: EXEMESTANE
     Indication: PRODUCT USED FOR UNKNOWN INDICATION
     Dosage: EVERY TWO DAYS
     Route: 065
  2. ZOMETA [Concomitant]
     Active Substance: ZOLEDRONIC ACID
     Indication: PRODUCT USED FOR UNKNOWN INDICATION
     Route: 065
  3. AFINITOR [Suspect]
     Active Substance: EVEROLIMUS
     Indication: BREAST CANCER METASTATIC
     Dosage: UNK
     Route: 065
     Dates: start: 20140523, end: 20140620
  4. AFINITOR [Suspect]
     Active Substance: EVEROLIMUS
     Dosage: 10 OT, UNK
     Route: 065
     Dates: start: 20140705, end: 20141015

REACTIONS (13)
  - Pericardial effusion [Fatal]
  - Metastases to pleura [Fatal]
  - Lung infiltration [Unknown]
  - Dyspnoea [Recovering/Resolving]
  - Treatment failure [Unknown]
  - Mucosal inflammation [Unknown]
  - Metastases to lung [Fatal]
  - Fatigue [Unknown]
  - Metastases to central nervous system [Fatal]
  - Pleural effusion [Unknown]
  - Pneumonitis [Recovering/Resolving]
  - Diarrhoea [Unknown]
  - Malignant neoplasm progression [Fatal]
